FAERS Safety Report 10241914 (Version 1)
Quarter: 2014Q2

REPORT INFORMATION
  Report Type: Spontaneous
  Country: FR (occurrence: FR)
  Receive Date: 20140617
  Receipt Date: 20140617
  Transmission Date: 20141212
  Serious: Yes (Hospitalization)
  Sender: FDA-Public Use
  Company Number: FR-GLAXOSMITHKLINE-B1002692A

PATIENT
  Age: 71 Year
  Sex: Male

DRUGS (10)
  1. VOTRIENT [Suspect]
     Indication: RENAL CELL CARCINOMA
     Route: 048
     Dates: start: 20131218
  2. INNOHEP [Suspect]
     Indication: PRODUCT USED FOR UNKNOWN INDICATION
     Dosage: .9IUAX VARIABLE DOSE
     Route: 065
     Dates: start: 20140225
  3. CORTANCYL [Concomitant]
     Route: 065
  4. OMEPRAZOLE [Concomitant]
     Route: 065
  5. XATRAL [Concomitant]
     Route: 065
  6. MICARDIS [Concomitant]
     Route: 065
  7. LOXEN [Concomitant]
     Route: 065
  8. CONTRAMAL [Concomitant]
     Route: 065
  9. STILNOX [Concomitant]
     Route: 065
  10. CALCIPARINE [Concomitant]
     Route: 065

REACTIONS (2)
  - Haematoma [Recovered/Resolved]
  - Coagulation time prolonged [Recovered/Resolved]
